FAERS Safety Report 5858905-0 (Version None)
Quarter: 2008Q3

REPORT INFORMATION
  Report Type: 
  Country: None (occurrence: None)
  Receive Date: 20080825
  Receipt Date: 20080811
  Transmission Date: 20090109
  Serious: Yes (Life-Threatening, Hospitalization, Other)
  Sender: FDA-Public Use
  Company Number: OPER20080100

PATIENT
  Age: 71 Year
  Sex: Female
  Weight: 68.5 kg

DRUGS (19)
  1. OPANA ER [Suspect]
     Indication: PAIN
     Dosage: 40 MG, BID, PER ORAL, 60 MG, BID, PER ORAL
     Route: 048
     Dates: start: 20070901, end: 20071101
  2. OPANA ER [Suspect]
     Indication: PAIN
     Dosage: 40 MG, BID, PER ORAL, 60 MG, BID, PER ORAL
     Route: 048
     Dates: start: 20071101, end: 20080101
  3. LYRICA [Suspect]
     Indication: RHEUMATOID ARTHRITIS
     Dosage: SEE IMAGE
     Route: 048
     Dates: start: 20070917
  4. LYRICA [Suspect]
     Indication: RHEUMATOID ARTHRITIS
     Dosage: SEE IMAGE
     Route: 048
     Dates: start: 20080114
  5. XANAX [Suspect]
  6. KLONOPIN [Suspect]
  7. ZOLOFT [Suspect]
  8. MONOPRIL [Concomitant]
  9. PREDNISONE [Concomitant]
  10. FOLIC ACID [Concomitant]
  11. WELLBUTRIN [Concomitant]
  12. PAMELOR [Concomitant]
  13. CELEBREX [Concomitant]
  14. ASPIRIN [Concomitant]
  15. METHOTREXATE [Concomitant]
  16. PLAVIX [Concomitant]
  17. LASIX [Concomitant]
  18. ZOCOR [Concomitant]
  19. TOPROL XR [Concomitant]

REACTIONS (7)
  - AGITATION [None]
  - CORONARY ARTERY DISEASE [None]
  - DRUG WITHDRAWAL SYNDROME [None]
  - FEELING ABNORMAL [None]
  - GASTROENTERITIS VIRAL [None]
  - MYOCARDIAL INFARCTION [None]
  - SEROTONIN SYNDROME [None]
